FAERS Safety Report 5920039-4 (Version None)
Quarter: 2008Q4

REPORT INFORMATION
  Report Type: 
  Country: None (occurrence: None)
  Receive Date: 20081014
  Receipt Date: 20080929
  Transmission Date: 20090506
  Serious: Yes (Hospitalization)
  Sender: FDA-Public Use
  Company Number: DSU-2008-01569

PATIENT
  Age: 61 Year
  Sex: Male

DRUGS (5)
  1. BENICAR [Suspect]
     Indication: HYPERTENSION
     Dosage: PER ORAL
     Route: 048
     Dates: start: 20070101
  2. WELCHOL [Suspect]
     Indication: DRUG USE FOR UNKNOWN INDICATION
     Dosage: 3750 MG (1250 MG, TID) ,PER ORAL
     Route: 048
     Dates: start: 20070101
  3. TOPROL (METOPROLOL SUCCINATE) (METOPROLOL SUCCINATE) [Concomitant]
  4. SYNTHROID (LEVOTHYROXINE SODIUM) (LEVOTHYROXINE SODIUM) [Concomitant]
  5. JANUVIA (SITAGLIPTIN) [Concomitant]

REACTIONS (7)
  - APPENDICITIS PERFORATED [None]
  - CHRONIC OBSTRUCTIVE PULMONARY DISEASE [None]
  - DISEASE COMPLICATION [None]
  - EMPHYSEMA [None]
  - GASTROINTESTINAL TOXICITY [None]
  - NO THERAPEUTIC RESPONSE [None]
  - PNEUMONIA [None]
